FAERS Safety Report 10638494 (Version 2)
Quarter: 2015Q1

REPORT INFORMATION
  Report Type: Spontaneous
  Country: US (occurrence: US)
  Receive Date: 20141208
  Receipt Date: 20150105
  Transmission Date: 20150720
  Serious: No
  Sender: FDA-Public Use
  Company Number: US-BAYER-2014-176031

PATIENT

DRUGS (1)
  1. XOFIGO [Suspect]
     Active Substance: RADIUM RA-223 DICHLORIDE
     Dosage: UNK
     Route: 042
     Dates: start: 20141120

REACTIONS (5)
  - Haematocrit decreased [None]
  - Haemoglobin decreased [None]
  - White blood cell count decreased [None]
  - Red blood cell count decreased [None]
  - Neutrophil count decreased [None]
